FAERS Safety Report 9394248 (Version 3)
Quarter: 2013Q3

REPORT INFORMATION
  Report Type: Spontaneous
  Country: CA (occurrence: CA)
  Receive Date: 20130711
  Receipt Date: 20130809
  Transmission Date: 20140515
  Serious: Yes (Other)
  Sender: FDA-Public Use
  Company Number: CA-ROCHE-1247220

PATIENT
  Sex: Male

DRUGS (7)
  1. XOLAIR [Suspect]
     Indication: ASTHMA
     Route: 058
     Dates: start: 20121121
  2. XOLAIR [Suspect]
     Route: 065
  3. XOLAIR [Suspect]
     Route: 065
  4. COVERSYL [Concomitant]
  5. AMLODIPINE [Concomitant]
  6. OMEPRAZOLE [Concomitant]
  7. ANDRIOL [Concomitant]

REACTIONS (2)
  - Influenza like illness [Recovered/Resolved]
  - Serum sickness [Unknown]
